FAERS Safety Report 9674106 (Version 1)
Quarter: 2013Q4

REPORT INFORMATION
  Report Type: Spontaneous
  Country: US (occurrence: US)
  Receive Date: 20131106
  Receipt Date: 20131106
  Transmission Date: 20140711
  Serious: No
  Sender: FDA-Public Use
  Company Number: US-AMGEN-USASP2013076672

PATIENT
  Age: 37 Year
  Sex: Female

DRUGS (1)
  1. ENBREL [Suspect]
     Indication: PSORIATIC ARTHROPATHY
     Dosage: 50 MG, Q2WK
     Route: 065
     Dates: start: 20090914, end: 2011

REACTIONS (4)
  - Vision blurred [Recovered/Resolved]
  - Headache [Recovered/Resolved]
  - Oedema peripheral [Not Recovered/Not Resolved]
  - Injection site pain [Not Recovered/Not Resolved]
